FAERS Safety Report 12168178 (Version 1)
Quarter: 2016Q1

REPORT INFORMATION
  Report Type: Report from Study
  Country: JP (occurrence: JP)
  Receive Date: 20160310
  Receipt Date: 20160310
  Transmission Date: 20160526
  Serious: Yes (Other)
  Sender: FDA-Public Use
  Company Number: JP-INCYTE CORPORATION-2015IN003597

PATIENT
  Age: 74 Year
  Sex: Female
  Weight: 42 kg

DRUGS (7)
  1. PREDONINE [Concomitant]
     Active Substance: PREDNISOLONE\PREDNISOLONE ACETATE\PREDNISOLONE SODIUM SUCCINATE
     Indication: MYELOFIBROSIS
     Dosage: UNK
     Route: 065
     Dates: start: 20141009, end: 20141119
  2. JAKAFI [Suspect]
     Active Substance: RUXOLITINIB
     Indication: MYELOFIBROSIS
     Dosage: 5 MG, QD
     Route: 048
     Dates: start: 20141120, end: 20141217
  3. PREDONINE [Concomitant]
     Active Substance: PREDNISOLONE\PREDNISOLONE ACETATE\PREDNISOLONE SODIUM SUCCINATE
     Dosage: 5 MG, UNK
     Route: 048
     Dates: start: 20141009, end: 20141119
  4. PREDONINE [Concomitant]
     Active Substance: PREDNISOLONE\PREDNISOLONE ACETATE\PREDNISOLONE SODIUM SUCCINATE
     Dosage: 5 MG, UNK
     Route: 048
     Dates: start: 20141218, end: 20150114
  5. JAKAFI [Suspect]
     Active Substance: RUXOLITINIB
     Dosage: 5 MG, QD
     Route: 048
     Dates: start: 20150910
  6. JAKAFI [Suspect]
     Active Substance: RUXOLITINIB
     Dosage: 5 MG, QD
     Route: 048
     Dates: start: 20150107, end: 20150811
  7. JAKAFI [Suspect]
     Active Substance: RUXOLITINIB
     Dosage: 5 MG, BID
     Route: 048
     Dates: start: 20150812, end: 20150909

REACTIONS (13)
  - Platelet count decreased [Not Recovered/Not Resolved]
  - Dehydration [Unknown]
  - Oedema peripheral [Not Recovered/Not Resolved]
  - Hyperkalaemia [Recovered/Resolved]
  - Oral herpes [Recovered/Resolved]
  - Anaemia [Recovering/Resolving]
  - Gingivitis [Recovering/Resolving]
  - Blood pressure diastolic decreased [Unknown]
  - Hypernatraemia [Recovered/Resolved]
  - Myelofibrosis [Not Recovered/Not Resolved]
  - Somnolence [Unknown]
  - Bacterial infection [Recovered/Resolved]
  - Bacterial infection [Recovered/Resolved]

NARRATIVE: CASE EVENT DATE: 20141126
